FAERS Safety Report 7259409-3 (Version None)
Quarter: 2011Q1

REPORT INFORMATION
  Report Type: 
  Country: None (occurrence: None)
  Receive Date: 20110129
  Receipt Date: 20100818
  Transmission Date: 20110831
  Serious: No
  Sender: FDA-Public Use
  Company Number: US-ABBOTT-10P-163-0666138-00

PATIENT
  Sex: Female
  Weight: 62.198 kg

DRUGS (5)
  1. AVAPRO [Concomitant]
     Dosage: QD
     Dates: start: 20100801
  2. ASPIRIN [Concomitant]
     Indication: PRODUCT USED FOR UNKNOWN INDICATION
     Dosage: QD
  3. HUMIRA [Suspect]
     Indication: RHEUMATOID ARTHRITIS
     Route: 058
     Dates: start: 20100724
  4. AVAPRO [Concomitant]
     Indication: BLOOD PRESSURE
     Route: 048
  5. NORVASC [Concomitant]
     Indication: BLOOD PRESSURE
     Dosage: QD

REACTIONS (3)
  - INJECTION SITE HAEMATOMA [None]
  - INJECTION SITE HAEMORRHAGE [None]
  - INJECTION SITE PAIN [None]
